FAERS Safety Report 10472285 (Version 2)
Quarter: 2014Q4

REPORT INFORMATION
  Report Type: Spontaneous
  Country: US (occurrence: None)
  Receive Date: 20140922
  Receipt Date: 20141104
  Transmission Date: 20150528
  Serious: Yes (Other)
  Sender: FDA-Public Use
  Company Number: 201409058

PATIENT
  Age: 55 Year
  Sex: Male
  Weight: 64.41 kg

DRUGS (1)
  1. TESTOPEL [Suspect]
     Active Substance: TESTOSTERONE
     Indication: BLOOD TESTOSTERONE DECREASED
     Dosage: 12 PELLETS EVERY 4-6 MONTHS
     Route: 058
     Dates: start: 20140423, end: 20140818

REACTIONS (6)
  - Device dislocation [None]
  - Implant site haemorrhage [None]
  - Implant site pain [None]
  - Implant site infection [None]
  - Hypersensitivity [None]
  - Overdose [None]
